FAERS Safety Report 22249859 (Version 1)
Quarter: 2023Q2

REPORT INFORMATION
  Report Type: Spontaneous
  Country: US (occurrence: None)
  Receive Date: 20230421
  Receipt Date: 20230421
  Transmission Date: 20230722
  Serious: Yes (Death)
  Sender: FDA-Public Use
  Company Number: None

PATIENT
  Age: 73 Year
  Sex: Female
  Weight: 111.58 kg

DRUGS (28)
  1. VERZENIO [Suspect]
     Active Substance: ABEMACICLIB
     Indication: Breast cancer female
     Dosage: FREQUENCY : TWICE A DAY;?
     Route: 048
     Dates: start: 20221130
  2. ASPIRIN [Concomitant]
  3. BACLOFEN [Concomitant]
     Active Substance: BACLOFEN
  4. BENAZEPRIL [Concomitant]
  5. BUPROPION [Concomitant]
  6. DEXAMETHASONE [Concomitant]
  7. FLUNCINONIDE [Concomitant]
  8. FUROSEMIDE [Concomitant]
  9. NORCO [Concomitant]
  10. IBRANCE [Concomitant]
     Active Substance: PALBOCICLIB
  11. IBUPROFEN [Concomitant]
  12. JANUVIA [Concomitant]
     Active Substance: SITAGLIPTIN PHOSPHATE
  13. KISQALI [Concomitant]
     Active Substance: RIBOCICLIB
  14. LETROZOLE [Concomitant]
     Active Substance: LETROZOLE
  15. LEVOTHYROXINE [Concomitant]
  16. LIDOCAINE [Concomitant]
  17. LORAZEPAM [Concomitant]
  18. MECLIZINE [Concomitant]
  19. CANNABIS SATIVA SUBSP. INDICA TOP [Concomitant]
     Active Substance: CANNABIS SATIVA SUBSP. INDICA TOP
  20. MELATONIN [Concomitant]
     Active Substance: MELATONIN
  21. METFORMIN [Concomitant]
  22. OMEPRAZOLE [Concomitant]
  23. POTASSIUM [Concomitant]
  24. PROCHLORPERAZINE [Concomitant]
  25. SENNOSIDES-DOCUSATE [Concomitant]
  26. TAMOXIFEN [Concomitant]
     Active Substance: TAMOXIFEN
  27. TRAMADOL [Concomitant]
  28. ZOMETA [Concomitant]
     Active Substance: ZOLEDRONIC ACID

REACTIONS (1)
  - Death [None]
